FAERS Safety Report 18788674 (Version 1)
Quarter: 2021Q1

REPORT INFORMATION
  Report Type: Spontaneous
  Country: US (occurrence: US)
  Receive Date: 20210126
  Receipt Date: 20210126
  Transmission Date: 20210419
  Serious: Yes (Other)
  Sender: FDA-Public Use
  Company Number: US-TAKEDA-2021TUS004191

PATIENT
  Sex: Female

DRUGS (1)
  1. VYVANSE [Suspect]
     Active Substance: LISDEXAMFETAMINE DIMESYLATE
     Indication: PRODUCT USED FOR UNKNOWN INDICATION
     Dosage: 30 MILLIGRAM
     Route: 065

REACTIONS (6)
  - Depressed mood [Unknown]
  - Hallucination, visual [Unknown]
  - Hallucination, auditory [Unknown]
  - Hypoaesthesia [Unknown]
  - Memory impairment [Unknown]
  - Paraesthesia [Unknown]
